FAERS Safety Report 8874095 (Version 2)
Quarter: 2012Q4

REPORT INFORMATION
  Report Type: 
  Country: US (occurrence: US)
  Receive Date: 20121023
  Receipt Date: 20121121
  Transmission Date: 20130627
  Serious: Yes (Other)
  Sender: FDA-Public Use
  Company Number: US-FRI-1000039525

PATIENT
  Age: 57 Year
  Sex: Female

DRUGS (10)
  1. VIIBRYD [Suspect]
     Indication: MAJOR DEPRESSION
     Dosage: 10 mg
     Route: 048
     Dates: start: 20121010, end: 201210
  2. VIIBRYD [Suspect]
     Dosage: 20 mg
     Route: 048
     Dates: start: 201210, end: 201210
  3. VIIBRYD [Suspect]
     Indication: MAJOR DEPRESSION
     Dosage: 40 mg
     Route: 048
     Dates: start: 201210
  4. AMBIEN [Concomitant]
  5. MIRTAZAPINE [Concomitant]
  6. CITALOPRAM [Concomitant]
     Dosage: 40 mg prn
  7. XANAX [Concomitant]
  8. ALEVE [Concomitant]
     Dates: start: 20121017
  9. OMEPRAZOLE [Concomitant]
  10. NEURONTIN [Concomitant]

REACTIONS (1)
  - Vaginal haemorrhage [Unknown]
